FAERS Safety Report 17957779 (Version 1)
Quarter: 2020Q2

REPORT INFORMATION
  Report Type: Spontaneous
  Country: CH (occurrence: CH)
  Receive Date: 20200629
  Receipt Date: 20200629
  Transmission Date: 20200714
  Serious: Yes (Other)
  Sender: FDA-Public Use
  Company Number: CH-SA-2020SA149893

PATIENT

DRUGS (6)
  1. LUCRIN [Concomitant]
     Active Substance: LEUPROLIDE ACETATE
     Dosage: UNK, Q4 MTS
     Route: 058
  2. DUPIXENT [Suspect]
     Active Substance: DUPILUMAB
     Indication: ASTHMA
     Dosage: UNK, Q3W
     Route: 058
     Dates: start: 202003
  3. AMLODIPINE [Concomitant]
     Active Substance: AMLODIPINE BESYLATE
  4. CO VALSARTAN [HYDROCHLOROTHIAZIDE;VALSARTAN] [Concomitant]
     Active Substance: HYDROCHLOROTHIAZIDE\VALSARTAN
     Dosage: UNK, STRENGTH 160/25 (UNITS: UNKNOWN)
     Route: 048
  5. DUPIXENT [Suspect]
     Active Substance: DUPILUMAB
     Indication: NEURODERMATITIS
     Dosage: UNK, QOW
     Route: 058
     Dates: end: 202003
  6. FLUCONAZOL [Concomitant]
     Active Substance: FLUCONAZOLE
     Dosage: 1/SETT
     Route: 048

REACTIONS (2)
  - Product use issue [Recovering/Resolving]
  - Fatigue [Recovering/Resolving]

NARRATIVE: CASE EVENT DATE: 202003
